FAERS Safety Report 25619836 (Version 2)
Quarter: 2025Q4

REPORT INFORMATION
  Report Type: Report from Study
  Country: US (occurrence: US)
  Receive Date: 20250730
  Receipt Date: 20251009
  Transmission Date: 20260118
  Serious: Yes (Hospitalization)
  Sender: ABBVIE
  Company Number: US-ABBVIE-6368612

PATIENT
  Age: 76 Year
  Sex: Female

DRUGS (1)
  1. SKYRIZI [Suspect]
     Active Substance: RISANKIZUMAB-RZAA
     Indication: Psoriasis
     Route: 058
     Dates: start: 20240509, end: 20250710

REACTIONS (4)
  - Spinal fracture [Recovered/Resolved]
  - Spinal fracture [Unknown]
  - Psoriasis [Recovering/Resolving]
  - Psoriasis [Recovered/Resolved]

NARRATIVE: CASE EVENT DATE: 20250101
